FAERS Safety Report 17652896 (Version 1)
Quarter: 2020Q2

REPORT INFORMATION
  Report Type: Spontaneous
  Country: US (occurrence: US)
  Receive Date: 20200409
  Receipt Date: 20200409
  Transmission Date: 20200713
  Serious: No
  Sender: FDA-Public Use
  Company Number: US-JNJFOC-20200404583

PATIENT
  Sex: Female
  Weight: 52.21 kg

DRUGS (2)
  1. BUSPAR [Concomitant]
     Active Substance: BUSPIRONE HYDROCHLORIDE
     Indication: ANXIETY
  2. TREMFYA [Suspect]
     Active Substance: GUSELKUMAB
     Indication: PSORIASIS
     Dosage: LAST DOSE WAS GIVEN IN APR-2020.
     Route: 058
     Dates: start: 201910

REACTIONS (4)
  - Viral infection [Recovered/Resolved]
  - Chest discomfort [Unknown]
  - Asthma [Unknown]
  - No adverse event [Unknown]

NARRATIVE: CASE EVENT DATE: 2019
